FAERS Safety Report 5848787-5 (Version None)
Quarter: 2008Q3

REPORT INFORMATION
  Report Type: 
  Country: None (occurrence: None)
  Receive Date: 20080818
  Receipt Date: 20080812
  Transmission Date: 20090109
  Serious: Yes (Life-Threatening, Hospitalization, Other)
  Sender: FDA-Public Use
  Company Number: US-GILEAD-2008-0017749

PATIENT
  Age: 31 Year
  Sex: Female

DRUGS (13)
  1. TRUVADA [Suspect]
     Indication: HIV INFECTION
     Route: 048
     Dates: start: 20070702
  2. PREZISTA [Suspect]
     Indication: HIV INFECTION
     Route: 048
     Dates: start: 20070702, end: 20070813
  3. RITONAVIR [Suspect]
     Indication: HIV INFECTION
     Route: 048
     Dates: start: 20070702
  4. MK-0518 [Suspect]
     Indication: HIV INFECTION
     Route: 048
     Dates: start: 20070702
  5. AMITRIPTYLINE HCL [Suspect]
     Dates: start: 20070726
  6. DAPSONE [Suspect]
     Dates: start: 20051020
  7. AZITHROMYCIN [Concomitant]
     Dates: start: 20070511
  8. CYCLOBENZAPRINE HCL [Concomitant]
     Dates: start: 20070712
  9. PROCRIT [Concomitant]
     Dates: start: 20070504
  10. PROCRIT [Concomitant]
     Dates: start: 20070723
  11. GABAPENTIN [Concomitant]
     Dates: start: 20040101
  12. OMEPRAZOLE [Concomitant]
     Dates: start: 20070514
  13. PROMETHAZINE [Concomitant]
     Dates: start: 20070702

REACTIONS (4)
  - ANAEMIA [None]
  - COAGULOPATHY [None]
  - HEPATITIS [None]
  - RENAL FAILURE ACUTE [None]
